FAERS Safety Report 10042352 (Version 1)
Quarter: 2014Q1

REPORT INFORMATION
  Report Type: Spontaneous
  Country: US (occurrence: US)
  Receive Date: 20140327
  Receipt Date: 20140327
  Transmission Date: 20141002
  Serious: No
  Sender: FDA-Public Use
  Company Number: US-BAYER-2014-043051

PATIENT
  Age: 65 Year
  Sex: Female

DRUGS (3)
  1. MAGNEVIST [Suspect]
     Indication: NUCLEAR MAGNETIC RESONANCE IMAGING
     Dosage: 20 ML, ONCE
  2. MAGNEVIST [Suspect]
     Indication: MULTIPLE SCLEROSIS
  3. SALINE [Concomitant]

REACTIONS (2)
  - Retching [None]
  - Vomiting [Recovered/Resolved]
